FAERS Safety Report 20149533 (Version 1)
Quarter: 2021Q4

REPORT INFORMATION
  Report Type: Spontaneous
  Country: ES (occurrence: ES)
  Receive Date: 20211205
  Receipt Date: 20211205
  Transmission Date: 20220303
  Serious: Yes (Other)
  Sender: FDA-Public Use
  Company Number: ES-CELLTRION INC.-2021ES016177

PATIENT

DRUGS (11)
  1. RITUXIMAB [Suspect]
     Active Substance: RITUXIMAB
     Indication: Behcet^s syndrome
     Dosage: UNK
     Route: 065
     Dates: start: 2014
  2. TOCILIZUMAB [Suspect]
     Active Substance: TOCILIZUMAB
     Indication: Behcet^s syndrome
     Dosage: UNK
     Route: 042
     Dates: start: 2011
  3. VALGANCICLOVIR [Suspect]
     Active Substance: VALGANCICLOVIR
     Indication: Herpes oesophagitis
     Dosage: UNK
     Route: 065
     Dates: start: 2015
  4. CYCLOPHOSPHAMIDE [Concomitant]
     Active Substance: CYCLOPHOSPHAMIDE
     Dosage: UNK
     Dates: start: 2014
  5. THALIDOMIDE [Concomitant]
     Active Substance: THALIDOMIDE
     Dosage: 50-100 MG
     Dates: start: 2011, end: 2013
  6. METHOTREXATE [Concomitant]
     Active Substance: METHOTREXATE
     Dosage: 10-25 MG/WEEK
     Dates: start: 2008, end: 2013
  7. CERTOLIZUMAB [Concomitant]
     Active Substance: CERTOLIZUMAB
     Dosage: UNK
     Dates: start: 2013
  8. CANAKINUMAB [Concomitant]
     Active Substance: CANAKINUMAB
     Dosage: UNK
     Dates: start: 2015
  9. METHYLPREDNISOLONE [Concomitant]
     Active Substance: METHYLPREDNISOLONE
     Dosage: 42 MG/DAY
  10. ANAKINRA [Concomitant]
     Active Substance: ANAKINRA
     Dosage: UNK
     Dates: start: 2015
  11. PREDNISONE [Concomitant]
     Active Substance: PREDNISONE

REACTIONS (5)
  - Bradycardia [Unknown]
  - Hypotension [Unknown]
  - Drug ineffective [Unknown]
  - Off label use [Unknown]
  - Off label use [Unknown]
